FAERS Safety Report 19462395 (Version 1)
Quarter: 2021Q2

REPORT INFORMATION
  Report Type: Spontaneous
  Country: GB (occurrence: GB)
  Receive Date: 20210625
  Receipt Date: 20210625
  Transmission Date: 20210717
  Serious: Yes (Other)
  Sender: FDA-Public Use
  Company Number: GB-MYLANLABS-2021M1036907

PATIENT
  Age: 64 Year
  Sex: Male
  Weight: 140 kg

DRUGS (14)
  1. WARFARIN [Suspect]
     Active Substance: WARFARIN
     Indication: PROPHYLAXIS
     Dosage: TAKE AS PER INR CHART
     Route: 048
     Dates: start: 20210315
  2. ANGITIL [Concomitant]
     Dosage: 1 DOSAGE FORM, BID (1 CAPSULE TWICE DAILY)
     Dates: start: 20210412
  3. MST CONTINUS [Concomitant]
     Active Substance: MORPHINE SULFATE
     Dosage: UNK
  4. WARFARIN [Suspect]
     Active Substance: WARFARIN
     Indication: PROPHYLAXIS
     Dosage: UNK
  5. APIXABAN [Concomitant]
     Active Substance: APIXABAN
     Dosage: 5 MILLIGRAM, BID (TAKE ONE TWICE A DAY)
     Dates: start: 20210518, end: 20210520
  6. MST CONTINUS [Concomitant]
     Active Substance: MORPHINE SULFATE
     Dosage: 1 DOSAGE FORM, BID (1 TABLET TWICE DAILY)
     Dates: start: 20210305
  7. PREGABALIN. [Concomitant]
     Active Substance: PREGABALIN
     Dosage: UNK
  8. DUORESP SPIROMAX [Concomitant]
     Active Substance: BUDESONIDE\FORMOTEROL
     Dosage: ONE PUFF TWICE A DAY
     Dates: start: 20210318
  9. MORPHGESIC [Concomitant]
     Active Substance: MORPHINE SULFATE
     Dosage: 1 DOSAGE FORM, BID (1 TABLET TWICE DAILY)
     Dates: start: 20210305
  10. PREDNISOLONE. [Concomitant]
     Active Substance: PREDNISOLONE
     Dosage: 8 DOSAGE FORM QD (TAKE 8 TABLETS DAILY AFTER FOOD)
     Dates: start: 20210412
  11. PROPRANOLOL [Concomitant]
     Active Substance: PROPRANOLOL HYDROCHLORIDE
     Dosage: 1?2 UP TO THREE TIMES A DAY WHEN REQUIRED
     Dates: start: 20210315
  12. WARFARIN [Suspect]
     Active Substance: WARFARIN
     Indication: PROPHYLAXIS
     Dosage: UNK
  13. FLUCLOXACILLIN [Concomitant]
     Active Substance: FLUCLOXACILLIN
     Dosage: 1 DOSAGE FORM, QID (1 CAPSULE FOUR TIMES A DAY)
     Dates: start: 20210324
  14. VENTOLIN [Concomitant]
     Active Substance: ALBUTEROL SULFATE
     Dosage: TAKE 1 TO 2 PUFFS UP TO FOUR TIMES A DAY AS REQUIRED
     Dates: start: 20210315

REACTIONS (1)
  - Erectile dysfunction [Recovering/Resolving]
